FAERS Safety Report 15213451 (Version 1)
Quarter: 2018Q4

REPORT INFORMATION
  Report Type: Spontaneous
  Country: AT (occurrence: AT)
  Receive Date: 20180730
  Receipt Date: 20180730
  Transmission Date: 20190204
  Serious: Yes (Other)
  Sender: FDA-Public Use
  Company Number: AT-TEVA-2018-AT-930215

PATIENT
  Age: 67 Year
  Sex: Female

DRUGS (4)
  1. LEVOFLOXACIN KRKA 500 MG [Suspect]
     Active Substance: LEVOFLOXACIN
  2. AMOXICILLIN. [Suspect]
     Active Substance: AMOXICILLIN
  3. PANTOLOC [Concomitant]
     Active Substance: PANTOPRAZOLE SODIUM
  4. BIOFLORIN [Concomitant]

REACTIONS (5)
  - Pharyngeal oedema [Recovered/Resolved]
  - Dyspnoea [Recovered/Resolved]
  - Lip swelling [Recovered/Resolved]
  - Dizziness [Recovered/Resolved]
  - Hyperhidrosis [Recovered/Resolved]
